FAERS Safety Report 18232611 (Version 1)
Quarter: 2020Q3

REPORT INFORMATION
  Report Type: Spontaneous
  Country: US (occurrence: US)
  Receive Date: 20200904
  Receipt Date: 20200904
  Transmission Date: 20201103
  Serious: No
  Sender: FDA-Public Use
  Company Number: US-PFIZER INC-2020342644

PATIENT
  Sex: Male

DRUGS (1)
  1. PHENYTOIN SODIUM. [Suspect]
     Active Substance: PHENYTOIN SODIUM
     Indication: SEIZURE
     Dosage: 500 MG, DAILY(200 MG IN MORNING 300 MG AT NIGHT EVERY DAY)
     Dates: end: 20130716

REACTIONS (1)
  - Drug ineffective [Unknown]
